FAERS Safety Report 10085439 (Version 1)
Quarter: 2014Q2

REPORT INFORMATION
  Report Type: Spontaneous
  Country: DE (occurrence: DE)
  Receive Date: 20140418
  Receipt Date: 20140418
  Transmission Date: 20141212
  Serious: Yes (Hospitalization)
  Sender: FDA-Public Use
  Company Number: DE-BIOGENIDEC-2014BI034566

PATIENT
  Age: 43 Year
  Sex: Female
  Weight: 95 kg

DRUGS (1)
  1. AVONEX [Suspect]
     Indication: MULTIPLE SCLEROSIS
     Route: 030
     Dates: start: 20120701

REACTIONS (3)
  - Intervertebral disc protrusion [Not Recovered/Not Resolved]
  - Hypertension [Not Recovered/Not Resolved]
  - Myalgia [Not Recovered/Not Resolved]
